FAERS Safety Report 25622645 (Version 2)
Quarter: 2025Q4

REPORT INFORMATION
  Report Type: Spontaneous
  Country: US (occurrence: US)
  Receive Date: 20250730
  Receipt Date: 20251121
  Transmission Date: 20260118
  Serious: Yes (Hospitalization, Other)
  Sender: GLAXOSMITHKLINE
  Company Number: US-GSK-US2025AMR095875

PATIENT
  Sex: Female
  Weight: 96 kg

DRUGS (4)
  1. IMITREX [Suspect]
     Active Substance: SUMATRIPTAN SUCCINATE
     Indication: Migraine
     Dosage: 100 MG, PRN
  2. TYLENOL [Concomitant]
     Active Substance: ACETAMINOPHEN
     Indication: Migraine
     Dosage: UNK 250-500 MG, PRN
  3. PROPRANOLOL [Concomitant]
     Active Substance: PROPRANOLOL HYDROCHLORIDE
     Indication: Migraine
     Dosage: UNK 60-80 MG, QD
  4. BOTOX [Concomitant]
     Active Substance: ONABOTULINUMTOXINA
     Indication: Migraine
     Dosage: 200 MG, Q3M

REACTIONS (2)
  - Foetal hypokinesia [Recovered/Resolved]
  - Exposure during pregnancy [Unknown]

NARRATIVE: CASE EVENT DATE: 20250623
